FAERS Safety Report 9226800 (Version 3)
Quarter: 2013Q2

REPORT INFORMATION
  Report Type: Spontaneous
  Country: US (occurrence: US)
  Receive Date: 20130412
  Receipt Date: 20130628
  Transmission Date: 20140414
  Serious: Yes (Hospitalization)
  Sender: FDA-Public Use
  Company Number: US-BAYER-2013-046151

PATIENT
  Age: 22 Year
  Sex: Female
  Weight: 81.63 kg

DRUGS (3)
  1. YAZ [Suspect]
     Indication: CONTRACEPTION
     Dosage: UNK
     Dates: start: 2005, end: 2007
  2. VICODIN [Concomitant]
  3. MORPHINE [Concomitant]

REACTIONS (1)
  - Deep vein thrombosis [None]
